FAERS Safety Report 9758195 (Version 1)
Quarter: 2013Q4

REPORT INFORMATION
  Report Type: Spontaneous
  Country: US (occurrence: US)
  Receive Date: 20131216
  Receipt Date: 20131216
  Transmission Date: 20140711
  Serious: No
  Sender: FDA-Public Use
  Company Number: US-BAXTER-2013BAX048198

PATIENT
  Age: 66 Year
  Sex: Female

DRUGS (4)
  1. DIANEAL LOW CALCIUM [Suspect]
     Indication: PERITONEAL DIALYSIS
     Route: 033
     Dates: start: 20130819
  2. DIANEAL LOW CALCIUM [Suspect]
     Route: 033
     Dates: start: 20130819
  3. DIANEAL LOW CALCIUM [Suspect]
     Indication: PERITONEAL DIALYSIS
     Route: 033
     Dates: start: 20130819
  4. DIANEAL LOW CALCIUM [Suspect]
     Route: 033
     Dates: start: 20130819

REACTIONS (1)
  - Nasopharyngitis [Recovering/Resolving]
